FAERS Safety Report 4750999-9 (Version None)
Quarter: 2005Q3

REPORT INFORMATION
  Report Type: 
  Country: None (occurrence: None)
  Receive Date: 20050822
  Receipt Date: 20050801
  Transmission Date: 20060218
  Serious: Yes (Death, Hospitalization)
  Sender: FDA-Public Use
  Company Number: 216852

PATIENT
  Age: 55 Year
  Sex: Male

DRUGS (8)
  1. AVASTIN [Suspect]
     Indication: RENAL CELL CARCINOMA STAGE UNSPECIFIED
     Dosage: 10 MG/KG, DAYS 1 + 15, INTRAVENOUS
     Route: 042
     Dates: start: 20050706
  2. INTERFERON ALFA-2B (INTERFERON ALFA-2B) [Suspect]
     Indication: RENAL CELL CARCINOMA STAGE UNSPECIFIED
     Dosage: 9 MIU, 3/WEEK, SUBCUTANEOUS
     Route: 058
     Dates: start: 20050706
  3. DEMEROL [Concomitant]
  4. MORPHINE [Concomitant]
  5. COMPAZINE [Concomitant]
  6. XANAX [Concomitant]
  7. THORAZINE [Concomitant]
  8. HALDOL [Concomitant]

REACTIONS (17)
  - ATELECTASIS [None]
  - CHILLS [None]
  - CYANOSIS [None]
  - DEHYDRATION [None]
  - DRUG INTERACTION [None]
  - FATIGUE [None]
  - HYPOTENSION [None]
  - HYPOXIA [None]
  - INFLUENZA LIKE ILLNESS [None]
  - MENTAL STATUS CHANGES [None]
  - METABOLIC ACIDOSIS [None]
  - OVERDOSE [None]
  - PNEUMONIA [None]
  - PULMONARY EMBOLISM [None]
  - PYREXIA [None]
  - RENAL FAILURE [None]
  - RESPIRATORY FAILURE [None]
